FAERS Safety Report 5771152-6 (Version None)
Quarter: 2008Q2

REPORT INFORMATION
  Report Type: 
  Country: None (occurrence: None)
  Receive Date: 20080613
  Receipt Date: 20080530
  Transmission Date: 20081010
  Serious: No
  Sender: FDA-Public Use
  Company Number: US-ABBOTT-08P-163-0454287-00

PATIENT
  Sex: Female
  Weight: 68.1 kg

DRUGS (9)
  1. HUMIRA [Suspect]
     Indication: RHEUMATOID ARTHRITIS
     Route: 058
     Dates: start: 20080521
  2. METHOTREXATE [Concomitant]
     Indication: RHEUMATOID ARTHRITIS
     Route: 048
  3. ALLEGRA-D [Concomitant]
     Indication: HYPERSENSITIVITY
     Route: 048
  4. TRIOBE [Concomitant]
     Indication: VITAMIN SUPPLEMENTATION
     Route: 048
  5. TYLOX [Concomitant]
     Indication: PAIN
     Route: 048
  6. ULTRAM ER [Concomitant]
     Indication: PAIN
     Route: 048
  7. ESTROGENIC SUBSTANCE [Concomitant]
     Indication: HORMONE REPLACEMENT THERAPY
     Route: 048
  8. ASTALIN [Concomitant]
     Indication: HYPERSENSITIVITY
  9. SECTRAL [Concomitant]
     Indication: SUPRAVENTRICULAR TACHYCARDIA
     Route: 048

REACTIONS (5)
  - HYPOAESTHESIA [None]
  - INJECTION SITE BRUISING [None]
  - OEDEMA PERIPHERAL [None]
  - PAIN IN EXTREMITY [None]
  - VISUAL DISTURBANCE [None]
